FAERS Safety Report 20499456 (Version 1)
Quarter: 2022Q1

REPORT INFORMATION
  Report Type: Spontaneous
  Country: DE (occurrence: DE)
  Receive Date: 20220222
  Receipt Date: 20220222
  Transmission Date: 20220423
  Serious: Yes (Other)
  Sender: FDA-Public Use
  Company Number: DE-AMGEN-DEUSP2022029330

PATIENT

DRUGS (4)
  1. FILGRASTIM [Suspect]
     Active Substance: FILGRASTIM
     Indication: Haematopoietic stem cell mobilisation
     Dosage: 105 MICROGRAM, QD
     Route: 065
  2. METHOTREXATE [Concomitant]
     Active Substance: METHOTREXATE
  3. AZATHIOPRINE [Concomitant]
     Active Substance: AZATHIOPRINE
  4. CYCLOPHOSPHAMIDE [Concomitant]
     Active Substance: CYCLOPHOSPHAMIDE
     Dosage: 2 GRAM PER SQUARE METRE

REACTIONS (1)
  - Pulmonary fibrosis [Unknown]
